FAERS Safety Report 4544019-9 (Version None)
Quarter: 2005Q1

REPORT INFORMATION
  Report Type: 
  Country: None (occurrence: None)
  Receive Date: 20050104
  Receipt Date: 20041125
  Transmission Date: 20050727
  Serious: Yes (Life-Threatening)
  Sender: FDA-Public Use
  Company Number: DE-MERCK-0411DEU00497

PATIENT
  Age: 69 Year
  Sex: Male
  Weight: 81 kg

DRUGS (9)
  1. COZAAR [Suspect]
     Indication: HYPERTENSION
     Route: 048
     Dates: start: 19950101, end: 20041105
  2. BEROTEC [Concomitant]
     Route: 065
  3. DIGIMERCK [Concomitant]
     Indication: TACHYCARDIA
     Route: 065
     Dates: start: 20020101
  4. REKAWAN [Concomitant]
     Route: 065
     Dates: start: 19900101
  5. SINGULAIR [Concomitant]
     Indication: ASTHMA
     Route: 048
     Dates: start: 19990101
  6. VIANI [Concomitant]
     Route: 065
  7. ALLOPURINOL [Concomitant]
     Indication: GOUT
     Route: 065
     Dates: start: 19900101
  8. CLONIDINE HYDROCHLORIDE [Concomitant]
     Indication: HYPERTENSION
     Route: 065
     Dates: start: 19990101
  9. ISOSORBIDE MONONITRATE [Concomitant]
     Indication: CORONARY ARTERY DISEASE
     Route: 065
     Dates: start: 19990101, end: 20040101

REACTIONS (1)
  - ASTHMA [None]
